FAERS Safety Report 4844542-3 (Version None)
Quarter: 2005Q4

REPORT INFORMATION
  Report Type: 
  Country: None (occurrence: None)
  Receive Date: 20051130
  Receipt Date: 20051130
  Transmission Date: 20060501
  Serious: Yes (Hospitalization)
  Sender: FDA-Public Use
  Company Number: None

PATIENT
  Age: 64 Year
  Sex: Female
  Weight: 61 kg

DRUGS (12)
  1. CARBOPLATIN [Suspect]
     Indication: OVARIAN CANCER
     Dosage: AUC 6, Q21D X 6, IV
     Route: 042
     Dates: start: 20050722, end: 20051103
  2. TAXOTERE [Suspect]
     Dosage: 75 MG/M2, Q21D X 6, IV
     Route: 042
     Dates: start: 20050722, end: 20051103
  3. TARCEVA [Suspect]
     Dosage: 50 MG PO DAYS 3-16 WITH EACH CYCLE OF CHEMOTHERAPY
     Route: 048
     Dates: start: 20050724, end: 20051107
  4. DEXAMETHASONE [Concomitant]
  5. KYTRIL [Concomitant]
  6. VICODIN [Concomitant]
  7. ATENOLOL [Concomitant]
  8. EVISTA [Concomitant]
  9. COLACE [Concomitant]
  10. AMBIEN [Concomitant]
  11. MULTI-VITAMIN [Concomitant]
  12. NEULASTA [Concomitant]

REACTIONS (20)
  - ABDOMINAL ABSCESS [None]
  - ALPHA HAEMOLYTIC STREPTOCOCCAL INFECTION [None]
  - ANASTOMOTIC LEAK [None]
  - BACTEROIDES INFECTION [None]
  - BLOOD ALBUMIN DECREASED [None]
  - BLOOD BILIRUBIN INCREASED [None]
  - CLOSTRIDIAL INFECTION [None]
  - CONSTIPATION [None]
  - DIARRHOEA [None]
  - ESCHERICHIA INFECTION [None]
  - FAILURE TO ANASTOMOSE [None]
  - HAEMATOCRIT DECREASED [None]
  - HAEMOGLOBIN DECREASED [None]
  - NAUSEA [None]
  - NODULE [None]
  - OPEN WOUND [None]
  - OVARIAN CANCER [None]
  - POST PROCEDURAL COMPLICATION [None]
  - RECTAL EXAMINATION ABNORMAL [None]
  - WOUND ABSCESS [None]
